FAERS Safety Report 7938902-1 (Version None)
Quarter: 2011Q4

REPORT INFORMATION
  Report Type: 
  Country: None (occurrence: None)
  Receive Date: 20111124
  Receipt Date: 20111121
  Transmission Date: 20120403
  Serious: Yes (Other)
  Sender: FDA-Public Use
  Company Number: CHPA2011US016524

PATIENT
  Age: 86 Year
  Sex: Male

DRUGS (3)
  1. TRANSDERM SCOP [Suspect]
     Indication: DROOLING
     Dosage: 1 DF, Q72H
     Route: 062
     Dates: start: 20100101
  2. TRANSDERM SCOP [Suspect]
     Indication: DIZZINESS
  3. ANTIBIOTICS [Concomitant]
     Dosage: UNK, UNK

REACTIONS (6)
  - SKIN MASS [None]
  - APPLICATION SITE VESICLES [None]
  - APPLICATION SITE ERYTHEMA [None]
  - OFF LABEL USE [None]
  - APPLICATION SITE BURN [None]
  - APPLICATION SITE DRYNESS [None]
